FAERS Safety Report 5356776-2 (Version None)
Quarter: 2007Q2

REPORT INFORMATION
  Report Type: 
  Country: None (occurrence: None)
  Receive Date: 20070614
  Receipt Date: 20060516
  Transmission Date: 20071010
  Serious: No
  Sender: FDA-Public Use
  Company Number: US-ASTRAZENECA-2006UW09619

PATIENT
  Age: 65 Year
  Sex: Female
  Weight: 103.4 kg

DRUGS (6)
  1. ATACAND [Suspect]
     Indication: HYPERTENSION
     Route: 048
  2. FEMARA [Concomitant]
  3. SYNTHROID [Concomitant]
  4. CYTOMEL [Concomitant]
  5. EFFEXOR XR [Concomitant]
  6. HYDROCHLOROTHIAZIDE [Concomitant]

REACTIONS (3)
  - JOINT SWELLING [None]
  - OEDEMA PERIPHERAL [None]
  - WEIGHT INCREASED [None]
